FAERS Safety Report 5321163-X (Version None)
Quarter: 2007Q2

REPORT INFORMATION
  Report Type: 
  Country: None (occurrence: None)
  Receive Date: 20070504
  Receipt Date: 20070418
  Transmission Date: 20071010
  Serious: Yes (Other)
  Sender: FDA-Public Use
  Company Number: 8023261

PATIENT
  Age: 56 Year
  Sex: Female
  Weight: 62.2 kg

DRUGS (3)
  1. KEPPRA [Suspect]
     Indication: CONVULSION
     Dosage: 500 MG 2/D PO
     Route: 048
     Dates: start: 20061219
  2. TEMADOR. MFR:  NOT SPECIFIED [Suspect]
     Indication: BRAIN NEOPLASM
  3. DILANTIN [Concomitant]

REACTIONS (3)
  - CHOLECYSTITIS [None]
  - NEUTROPENIA [None]
  - PLATELET COUNT DECREASED [None]
